FAERS Safety Report 15721239 (Version 2)
Quarter: 2018Q4

REPORT INFORMATION
  Report Type: Spontaneous
  Country: DE (occurrence: DE)
  Receive Date: 20181214
  Receipt Date: 20181224
  Transmission Date: 20190205
  Serious: Yes (Hospitalization, Other)
  Sender: FDA-Public Use
  Company Number: DE-AMGEN-DEUSP2018176680

PATIENT
  Age: 70 Year
  Sex: Male

DRUGS (5)
  1. MARCUMAR [Concomitant]
     Active Substance: PHENPROCOUMON
     Indication: ATRIAL FIBRILLATION
     Dosage: UNK UNK, QD
  2. VIGANTOLETTEN [Concomitant]
     Active Substance: CHOLECALCIFEROL
     Indication: OSTEOPOROSIS
     Dosage: 1000 I.E. UNK, UNK
     Dates: start: 20180614
  3. METOPROLOL. [Concomitant]
     Active Substance: METOPROLOL
     Indication: HYPERTENSION
  4. REPATHA [Suspect]
     Active Substance: EVOLOCUMAB
     Indication: DYSLIPIDAEMIA
     Dosage: 140 MG, UNK
     Route: 058
     Dates: start: 201805, end: 201810
  5. METOPROLOL. [Concomitant]
     Active Substance: METOPROLOL
     Indication: ARRHYTHMIA
     Dosage: 23.5 MG, Q12H

REACTIONS (1)
  - Pancreatitis [Recovered/Resolved]

NARRATIVE: CASE EVENT DATE: 2018
